FAERS Safety Report 8797805 (Version 2)
Quarter: 2012Q4

REPORT INFORMATION
  Report Type: 
  Country: DE (occurrence: DE)
  Receive Date: 20120920
  Receipt Date: 20121001
  Transmission Date: 20130627
  Serious: Yes (Death)
  Sender: FDA-Public Use
  Company Number: DE-BAYER-2012-097594

PATIENT
  Age: 21 Year
  Sex: Female

DRUGS (1)
  1. ACETYLSALICYLIC ACID (} 100 MG) [Suspect]
     Indication: INFLUENZA
     Dosage: 300 mg, 2-3 times per day: total of 8 tablets over 3 days
     Route: 048

REACTIONS (4)
  - Reye^s syndrome [Fatal]
  - Hepatic encephalopathy [Fatal]
  - Acute hepatic failure [Fatal]
  - Brain oedema [Fatal]
